FAERS Safety Report 23325598 (Version 2)
Quarter: 2023Q4

REPORT INFORMATION
  Report Type: Spontaneous
  Country: US (occurrence: US)
  Receive Date: 20231221
  Receipt Date: 20231227
  Transmission Date: 20240109
  Serious: Yes (Other)
  Sender: FDA-Public Use
  Company Number: US-MLMSERVICE-20231201-4703760-1

PATIENT

DRUGS (2)
  1. HYDROXYCHLOROQUINE [Suspect]
     Active Substance: HYDROXYCHLOROQUINE
     Indication: Cutaneous calcification
     Dosage: 400 MG, QD
     Route: 065
  2. DILTIAZEM [Concomitant]
     Active Substance: DILTIAZEM
     Indication: Cutaneous calcification
     Dosage: 180 MG, QD

REACTIONS (6)
  - Dermatomyositis [Recovering/Resolving]
  - Condition aggravated [Recovering/Resolving]
  - Rash [Recovering/Resolving]
  - Poikiloderma [Recovering/Resolving]
  - Erythema [Recovering/Resolving]
  - Heliotrope rash [Recovering/Resolving]
